FAERS Safety Report 6023281-X (Version None)
Quarter: 2008Q4

REPORT INFORMATION
  Report Type: 
  Country: None (occurrence: None)
  Receive Date: 20081224
  Receipt Date: 20081224
  Transmission Date: 20090506
  Serious: Yes (Other)
  Sender: FDA-Public Use
  Company Number: None

PATIENT
  Age: 47 Year
  Sex: Male
  Weight: 72.5755 kg

DRUGS (1)
  1. CHANTIX [Suspect]
     Indication: SMOKING CESSATION THERAPY
     Dosage: 2 PILLS A DAY PO
     Route: 048
     Dates: start: 20081124, end: 20081220

REACTIONS (8)
  - ANGER [None]
  - CRYING [None]
  - FEELING OF DESPAIR [None]
  - MOOD SWINGS [None]
  - PARTNER STRESS [None]
  - PATIENT RESTRAINT [None]
  - PRODUCT QUALITY ISSUE [None]
  - TREMOR [None]
